FAERS Safety Report 19679049 (Version 2)
Quarter: 2021Q3

REPORT INFORMATION
  Report Type: Spontaneous
  Country: ES (occurrence: ES)
  Receive Date: 20210809
  Receipt Date: 20210812
  Transmission Date: 20211014
  Serious: Yes (Death, Other)
  Sender: FDA-Public Use
  Company Number: ES-ABBVIE-21K-144-4031881-00

PATIENT
  Age: 65 Year
  Sex: Male

DRUGS (2)
  1. KALETRA [Suspect]
     Active Substance: LOPINAVIR\RITONAVIR
     Indication: COVID-19
     Route: 048
     Dates: start: 2020
  2. TACROLIMUS. [Interacting]
     Active Substance: TACROLIMUS
     Indication: LUNG TRANSPLANT
     Route: 065
     Dates: end: 2020

REACTIONS (4)
  - Death [Fatal]
  - Drug level increased [Unknown]
  - Drug interaction [Unknown]
  - Off label use [Unknown]

NARRATIVE: CASE EVENT DATE: 2020
